FAERS Safety Report 9335656 (Version 3)
Quarter: 2013Q3

REPORT INFORMATION
  Report Type: Spontaneous
  Country: FR (occurrence: FR)
  Receive Date: 20130605
  Receipt Date: 20130819
  Transmission Date: 20140515
  Serious: Yes (Hospitalization, Other)
  Sender: FDA-Public Use
  Company Number: FR-009507513-1305FRA017159

PATIENT
  Age: 71 Year
  Sex: Male

DRUGS (6)
  1. INVANZ [Suspect]
     Indication: ESCHERICHIA INFECTION
     Dosage: 1 DF, QD
     Route: 042
     Dates: start: 20130412, end: 20130422
  2. ROCEPHIN [Suspect]
     Indication: ESCHERICHIA INFECTION
     Dosage: UNK
     Route: 042
     Dates: start: 20130326, end: 20130411
  3. EXACYL [Concomitant]
     Dosage: 1 DF, TID
     Route: 048
  4. INEXIUM [Concomitant]
     Dosage: 1 UNK, UNK
     Route: 048
  5. SEROPRAM [Concomitant]
     Dosage: 1 DF, QD
     Route: 048
  6. SPECIAFOLDINE [Concomitant]
     Dosage: 1 UNK, UNK
     Route: 048

REACTIONS (2)
  - Renal failure acute [Unknown]
  - Confusional state [Recovered/Resolved]
